FAERS Safety Report 21872202 (Version 1)
Quarter: 2023Q1

REPORT INFORMATION
  Report Type: Spontaneous
  Country: US (occurrence: None)
  Receive Date: 20230113
  Receipt Date: 20230113
  Transmission Date: 20230417
  Serious: Yes (Hospitalization)
  Sender: FDA-Public Use
  Company Number: None

PATIENT
  Age: 49 Year
  Sex: Female

DRUGS (15)
  1. PROMACTA [Suspect]
     Active Substance: ELTROMBOPAG OLAMINE
     Indication: Thrombocytopenia
     Dosage: FREQUENCY : DAILY;?
     Route: 048
     Dates: start: 20160205
  2. ADVAIR DISKU AER [Concomitant]
  3. FERROUS SULF TAB [Concomitant]
  4. LORAZEPAM TAB [Concomitant]
  5. MONTELUKAST SODIUM [Concomitant]
     Active Substance: MONTELUKAST SODIUM
  6. MULTI-VITAMIN TAB [Concomitant]
  7. RANITIDINE TAB [Concomitant]
  8. SINGULAIR TAB [Concomitant]
  9. STOOL SOFTNR CAP [Concomitant]
  10. TAMOXIFEN CITRATE [Concomitant]
     Active Substance: TAMOXIFEN CITRATE
  11. TOVIAZ TAB [Concomitant]
  12. VITAMIN A CAP [Concomitant]
  13. VITAMIN C TAB [Concomitant]
  14. VITAMIN D3 TAB [Concomitant]
  15. ZOLOFT [Concomitant]
     Active Substance: SERTRALINE HYDROCHLORIDE

REACTIONS (2)
  - Biliary colic [None]
  - Splenomegaly [None]

NARRATIVE: CASE EVENT DATE: 20221226
